FAERS Safety Report 16821140 (Version 1)
Quarter: 2019Q3

REPORT INFORMATION
  Report Type: Spontaneous
  Country: FR (occurrence: FR)
  Receive Date: 20190918
  Receipt Date: 20190918
  Transmission Date: 20191005
  Serious: Yes (Hospitalization)
  Sender: FDA-Public Use
  Company Number: FR-ACCORD-155028

PATIENT
  Age: 62 Year
  Sex: Female
  Weight: 60 kg

DRUGS (3)
  1. FLUOROURACILE ACCORD [Suspect]
     Active Substance: FLUOROURACIL
     Indication: OVARIAN CANCER STAGE III
     Route: 041
     Dates: start: 20190506, end: 20190507
  2. FLUOROURACILE ACCORD [Concomitant]
     Active Substance: FLUOROURACIL
     Indication: OVARIAN CANCER STAGE III
     Route: 042
     Dates: start: 20190506, end: 20190506
  3. OXALIPLATINE ACCORD [Concomitant]
     Active Substance: OXALIPLATIN
     Indication: OVARIAN CANCER STAGE III
     Route: 041
     Dates: start: 20190506, end: 20190506

REACTIONS (3)
  - Hypotension [Recovered/Resolved]
  - Sense of oppression [Recovered/Resolved]
  - Dyspnoea [Recovered/Resolved]

NARRATIVE: CASE EVENT DATE: 20190506
